FAERS Safety Report 22208901 (Version 1)
Quarter: 2023Q2

REPORT INFORMATION
  Report Type: Other
  Country: US (occurrence: US)
  Receive Date: 20230413
  Receipt Date: 20230413
  Transmission Date: 20230722
  Serious: Yes (Other)
  Sender: FDA-Public Use
  Company Number: US-TRAVERE-2023TVT00004

PATIENT
  Sex: Female

DRUGS (1)
  1. CHOLBAM [Suspect]
     Active Substance: CHOLIC ACID
     Indication: Jaundice neonatal
     Dosage: 50 MG, AS DIRECTED
     Route: 048
     Dates: start: 20221011

REACTIONS (1)
  - Transposition of the great vessels [Unknown]
